FAERS Safety Report 18308519 (Version 1)
Quarter: 2020Q3

REPORT INFORMATION
  Report Type: Spontaneous
  Country: US (occurrence: US)
  Receive Date: 20200924
  Receipt Date: 20200924
  Transmission Date: 20201103
  Serious: Yes (Other)
  Sender: FDA-Public Use
  Company Number: NVSC2020US256864

PATIENT
  Age: 82 Year

DRUGS (2)
  1. BEOVU [Suspect]
     Active Substance: BROLUCIZUMAB-DBLL
     Indication: NEOVASCULAR AGE-RELATED MACULAR DEGENERATION
     Dosage: 6 MG, ONCE/SINGLE, OD
     Route: 047
     Dates: start: 20200427
  2. EYLEA [Suspect]
     Active Substance: AFLIBERCEPT
     Indication: PRODUCT USED FOR UNKNOWN INDICATION
     Dosage: UNK (EVERY 6 WEEKS)
     Route: 065
     Dates: start: 20180330

REACTIONS (2)
  - Blindness unilateral [Unknown]
  - Vitritis [Recovering/Resolving]

NARRATIVE: CASE EVENT DATE: 20200520
